FAERS Safety Report 6144766-1 (Version None)
Quarter: 2009Q2

REPORT INFORMATION
  Report Type: 
  Country: None (occurrence: None)
  Receive Date: 20090406
  Receipt Date: 20090324
  Transmission Date: 20091009
  Serious: Yes (Other)
  Sender: FDA-Public Use
  Company Number: US-ELI_LILLY_AND_COMPANY-US200903006253

PATIENT
  Sex: Female

DRUGS (9)
  1. EVISTA [Suspect]
     Dosage: UNK, UNKNOWN
     Route: 065
  2. TYLENOL (CAPLET) [Concomitant]
     Indication: PAIN
     Dosage: UNK, UNKNOWN
     Route: 065
  3. SYNTHROID [Concomitant]
     Dosage: UNK, UNKNOWN
     Route: 065
  4. PREVACID [Concomitant]
     Dosage: UNK, UNKNOWN
     Route: 065
  5. ATENOLOL [Concomitant]
     Dosage: UNK, UNKNOWN
     Route: 065
  6. NORVASC [Concomitant]
     Dosage: UNK, UNKNOWN
     Route: 065
  7. CALCIUM [Concomitant]
     Dosage: UNK, UNKNOWN
     Route: 065
  8. VITAMIN D [Concomitant]
     Dosage: UNK, UNKNOWN
     Route: 065
  9. MICARDIS [Concomitant]
     Dosage: UNK, UNKNOWN
     Route: 065

REACTIONS (5)
  - BACK PAIN [None]
  - GAIT DISTURBANCE [None]
  - HEAD DISCOMFORT [None]
  - ROAD TRAFFIC ACCIDENT [None]
  - THORACIC VERTEBRAL FRACTURE [None]
